FAERS Safety Report 15658623 (Version 2)
Quarter: 2018Q4

REPORT INFORMATION
  Report Type: Report from Study
  Country: US (occurrence: US)
  Receive Date: 20181126
  Receipt Date: 20181130
  Transmission Date: 20190205
  Serious: Yes (Death, Hospitalization, Other)
  Sender: FDA-Public Use
  Company Number: US-SA-2018SA320259

PATIENT
  Age: 57 Year
  Sex: Male

DRUGS (2)
  1. ENOXAPARIN SODIUM. [Suspect]
     Active Substance: ENOXAPARIN SODIUM
     Dosage: 100 MG, Q12H
     Route: 058
     Dates: start: 20181010, end: 20181114
  2. PIPERACILLIN SODIUM/TAZOBACTAM SODIUM [Suspect]
     Active Substance: PIPERACILLIN SODIUM\TAZOBACTAM SODIUM
     Dosage: UNK
     Route: 042
     Dates: start: 20181010

REACTIONS (16)
  - Obstructive airways disorder [Fatal]
  - Non-small cell lung cancer [Recovered/Resolved]
  - Lung cancer metastatic [Fatal]
  - Cough [Recovered/Resolved]
  - Pulmonary embolism [Recovered/Resolved]
  - Nausea [Recovered/Resolved]
  - Abdominal pain [Recovered/Resolved]
  - Condition aggravated [Recovered/Resolved]
  - Lymphadenopathy [Recovered/Resolved]
  - Dysphonia [Recovered/Resolved]
  - Adenocarcinoma [Recovered/Resolved]
  - Neoplasm malignant [Recovered/Resolved]
  - Stridor [Recovered/Resolved]
  - Lymphadenopathy mediastinal [Recovered/Resolved]
  - Pneumonia [Recovered/Resolved]
  - Vomiting [Recovered/Resolved]

NARRATIVE: CASE EVENT DATE: 20181017
